FAERS Safety Report 14389819 (Version 1)
Quarter: 2018Q1

REPORT INFORMATION
  Report Type: Report from Study
  Country: BR (occurrence: BR)
  Receive Date: 20180115
  Receipt Date: 20180115
  Transmission Date: 20180509
  Serious: Yes (Other)
  Sender: FDA-Public Use
  Company Number: PHHY2018BR005269

PATIENT
  Age: 69 Year
  Sex: Female

DRUGS (2)
  1. ACLASTA [Suspect]
     Active Substance: ZOLEDRONIC ACID
     Indication: PRODUCT USED FOR UNKNOWN INDICATION
     Dosage: UNK UNK, Q12MO
     Route: 042
  2. ACLASTA [Suspect]
     Active Substance: ZOLEDRONIC ACID
     Dosage: UNK, Q12MO
     Route: 042
     Dates: start: 20170320, end: 20170320

REACTIONS (14)
  - Injury [Unknown]
  - Hypoacusis [Recovering/Resolving]
  - Asthenia [Unknown]
  - Fall [Recovering/Resolving]
  - Malaise [Unknown]
  - Drug ineffective [Recovering/Resolving]
  - Pain in extremity [Recovering/Resolving]
  - Weight decreased [Unknown]
  - Abdominal discomfort [Unknown]
  - Limb discomfort [Unknown]
  - Fatigue [Unknown]
  - Renal pain [Unknown]
  - Diabetes mellitus [Not Recovered/Not Resolved]
  - Bone density decreased [Unknown]
